FAERS Safety Report 6955541-X (Version None)
Quarter: 2010Q3

REPORT INFORMATION
  Report Type: 
  Country: None (occurrence: None)
  Receive Date: 20100826
  Receipt Date: 20100826
  Transmission Date: 20110219
  Serious: Yes (Other)
  Sender: FDA-Public Use
  Company Number: None

PATIENT
  Age: 58 Year
  Sex: Female
  Weight: 51.7101 kg

DRUGS (2)
  1. ENBREL [Suspect]
     Indication: PSORIASIS
     Dosage: 25 MG 2 X A WEEK SQ
     Route: 058
     Dates: start: 20100101, end: 20100821
  2. ENBREL [Suspect]
     Indication: RHEUMATOID ARTHRITIS
     Dosage: 25 MG 2 X A WEEK SQ
     Route: 058
     Dates: start: 20100101, end: 20100821

REACTIONS (3)
  - HEADACHE [None]
  - NEEDLE ISSUE [None]
  - SUICIDAL IDEATION [None]
